FAERS Safety Report 7202024-8 (Version None)
Quarter: 2010Q4

REPORT INFORMATION
  Report Type: 
  Country: None (occurrence: None)
  Receive Date: 20101229
  Receipt Date: 20101227
  Transmission Date: 20110411
  Serious: Yes (Hospitalization, Other)
  Sender: FDA-Public Use
  Company Number: FR-JNJFOC-20101206818

PATIENT
  Sex: Female

DRUGS (8)
  1. RISPERDAL [Suspect]
     Indication: PRODUCT USED FOR UNKNOWN INDICATION
     Route: 048
  2. RISPERDAL [Suspect]
     Route: 048
  3. CYMBALTA [Suspect]
     Indication: PRODUCT USED FOR UNKNOWN INDICATION
     Route: 048
  4. TERCIAN [Suspect]
     Indication: PRODUCT USED FOR UNKNOWN INDICATION
     Route: 048
  5. THERALENE [Concomitant]
     Route: 065
  6. SULFARLEM S 25 [Concomitant]
     Route: 065
  7. NOCTAMIDE [Concomitant]
     Route: 065
  8. ECONAZOLE NITRATE [Concomitant]
     Route: 065

REACTIONS (3)
  - CONSTIPATION [None]
  - HEPATITIS [None]
  - INTESTINAL OBSTRUCTION [None]
